FAERS Safety Report 9773538 (Version 2)
Quarter: 2014Q1

REPORT INFORMATION
  Report Type: Spontaneous
  Country: GB (occurrence: None)
  Receive Date: 20131217
  Receipt Date: 20140102
  Transmission Date: 20141002
  Serious: Yes (Other)
  Sender: FDA-Public Use
  Company Number: AUR-APL-2013-10479

PATIENT
  Age: 73 Year
  Sex: Male

DRUGS (2)
  1. TAMSULOSIN (TAMSULOSIN) [Suspect]
     Indication: BENIGN PROSTATIC HYPERPLASIA
  2. TAMSULOSIN (TAMSULOSIN) [Suspect]
     Indication: LOWER URINARY TRACT SYMPTOMS

REACTIONS (5)
  - Fall [None]
  - Injury [None]
  - Dizziness [None]
  - Balance disorder [None]
  - Hypotension [None]
